FAERS Safety Report 20064487 (Version 7)
Quarter: 2022Q1

REPORT INFORMATION
  Report Type: Report from Study
  Country: CA (occurrence: CA)
  Receive Date: 20211112
  Receipt Date: 20220304
  Transmission Date: 20220423
  Serious: Yes (Hospitalization, Other)
  Sender: FDA-Public Use
  Company Number: CA-BRISTOL-MYERS SQUIBB COMPANY-BMS-2021-062510

PATIENT
  Age: 67 Year
  Sex: Female
  Weight: 49.2 kg

DRUGS (21)
  1. NIVOLUMAB [Suspect]
     Active Substance: NIVOLUMAB
     Indication: Anaplastic thyroid cancer
     Dosage: 150 MILLIGRAM, Q2WK
     Route: 042
     Dates: start: 20210624
  2. NIVOLUMAB [Suspect]
     Active Substance: NIVOLUMAB
     Dosage: 480 MILLIGRAM, Q4WK
     Route: 042
     Dates: start: 20210624
  3. PERINDOPRIL [Suspect]
     Active Substance: PERINDOPRIL
     Indication: Hypertension
     Dosage: UNK
     Route: 065
  4. COVID-19 VACCINE NOS [Suspect]
     Active Substance: COVID-19 VACCINE NOS
     Indication: Prophylaxis
     Dosage: 3RD DOSE
     Route: 065
  5. TRAMETINIB [Suspect]
     Active Substance: TRAMETINIB
     Indication: Thyroid cancer
     Dosage: 2 MILLIGRAM
     Route: 048
     Dates: start: 20200923
  6. DABRAFENIB [Suspect]
     Active Substance: DABRAFENIB
     Indication: Thyroid cancer
     Dosage: 150MG/75MG
     Route: 048
     Dates: start: 20200923
  7. METOCLOPRAMIDE [Concomitant]
     Active Substance: METOCLOPRAMIDE
     Indication: Product used for unknown indication
     Dosage: UNK
     Route: 065
  8. CELEBREX [Concomitant]
     Active Substance: CELECOXIB
     Indication: Product used for unknown indication
     Dosage: UNK
     Route: 065
  9. AMITRIPTYLINE [Concomitant]
     Active Substance: AMITRIPTYLINE
     Indication: Product used for unknown indication
     Dosage: UNK
     Route: 065
  10. VITAMIN C [Concomitant]
     Active Substance: ASCORBIC ACID
     Indication: Product used for unknown indication
     Dosage: UNK
     Route: 065
  11. LAX [LACTULOSE] [Concomitant]
     Indication: Product used for unknown indication
     Dosage: UNK
     Route: 065
  12. CHOLECALCIFEROL [Concomitant]
     Active Substance: CHOLECALCIFEROL
     Indication: Product used for unknown indication
     Dosage: UNK
     Route: 065
  13. LEVOTHYROXINE [Concomitant]
     Active Substance: LEVOTHYROXINE
     Indication: Product used for unknown indication
     Dosage: UNK
     Route: 065
  14. ATIVAN [Concomitant]
     Active Substance: LORAZEPAM
     Indication: Product used for unknown indication
     Dosage: UNK
     Route: 065
  15. HYDROMORPHONE [Concomitant]
     Active Substance: HYDROMORPHONE
     Indication: Product used for unknown indication
     Dosage: UNK
     Route: 065
  16. METHADONE [Concomitant]
     Active Substance: METHADONE HYDROCHLORIDE
     Indication: Product used for unknown indication
     Dosage: UNK
     Route: 065
  17. PREGABALIN [Concomitant]
     Active Substance: PREGABALIN
     Indication: Product used for unknown indication
     Dosage: UNK
     Route: 065
  18. SENOKOT [Concomitant]
     Active Substance: SENNOSIDES
     Indication: Product used for unknown indication
     Dosage: UNK
     Route: 065
  19. VITAMIN B COMPLEX [Concomitant]
     Active Substance: CYANOCOBALAMIN\DEXPANTHENOL\NIACINAMIDE\PYRIDOXINE HYDROCHLORIDE\RIBOFLAVIN 5^-PHOSPHATE SODIUM\THIA
     Indication: Product used for unknown indication
     Dosage: UNK
     Route: 065
  20. BISOPROLOL [Concomitant]
     Active Substance: BISOPROLOL
     Indication: Product used for unknown indication
     Dosage: UNK
     Route: 065
  21. ONDANSETRON [Concomitant]
     Active Substance: ONDANSETRON
     Indication: Product used for unknown indication
     Route: 065

REACTIONS (24)
  - Dry mouth [Recovered/Resolved]
  - Pyrexia [Not Recovered/Not Resolved]
  - Constipation [Recovered/Resolved]
  - Anaphylactic reaction [Recovered/Resolved]
  - Hypersensitivity [Recovered/Resolved]
  - Malignant neoplasm progression [Unknown]
  - Neutropenia [Unknown]
  - Fatigue [Unknown]
  - Decreased appetite [Unknown]
  - Mucosal inflammation [Unknown]
  - Pain [Unknown]
  - Anxiety [Unknown]
  - Somnolence [Unknown]
  - Dyspnoea [Unknown]
  - Headache [Not Recovered/Not Resolved]
  - Nausea [Not Recovered/Not Resolved]
  - Depression [Unknown]
  - Malaise [Unknown]
  - Blood test abnormal [Not Recovered/Not Resolved]
  - Rash [Recovered/Resolved]
  - Cognitive disorder [Unknown]
  - Ejection fraction decreased [Recovered/Resolved]
  - Intentional product use issue [Unknown]
  - Dysphagia [Unknown]

NARRATIVE: CASE EVENT DATE: 20200923
